FAERS Safety Report 7545053-7 (Version None)
Quarter: 2011Q2

REPORT INFORMATION
  Report Type: 
  Country: None (occurrence: None)
  Receive Date: 20110614
  Receipt Date: 20110603
  Transmission Date: 20111010
  Serious: No
  Sender: FDA-Public Use
  Company Number: US-BAYER-2011-048831

PATIENT
  Age: 24 Year
  Sex: Female
  Weight: 89 kg

DRUGS (2)
  1. VITAMIN TAB [Concomitant]
     Dosage: 1 DF, QD
     Route: 048
  2. ASPIRIN [Suspect]
     Indication: PROPHYLAXIS
     Dosage: 1 DF, QD
     Route: 048
     Dates: start: 20110512

REACTIONS (1)
  - NO ADVERSE EVENT [None]
